FAERS Safety Report 17143369 (Version 8)
Quarter: 2021Q3

REPORT INFORMATION
  Report Type: Report from Study
  Country: FR (occurrence: FR)
  Receive Date: 20191212
  Receipt Date: 20210928
  Transmission Date: 20211014
  Serious: Yes (Hospitalization, Other)
  Sender: FDA-Public Use
  Company Number: FR-MYLANLABS-2019M1120361

PATIENT
  Age: 67 Year
  Sex: Male
  Weight: 60 kg

DRUGS (12)
  1. TACROLIMUS MONOHYDRATE [Suspect]
     Active Substance: TACROLIMUS
     Dosage: 12 MG, UNK
     Route: 048
     Dates: start: 20190330
  2. TACROLIMUS MONOHYDRATE [Suspect]
     Active Substance: TACROLIMUS
     Dosage: 40 MILLIGRAM
     Route: 048
     Dates: start: 20190928
  3. CORTANCYL [Concomitant]
     Active Substance: PREDNISONE
     Indication: RENAL TRANSPLANT FAILURE
     Dosage: 10 MILLIGRAM
     Route: 065
     Dates: start: 20190330
  4. PREDNISONE. [Suspect]
     Active Substance: PREDNISONE
     Indication: IMMUNOSUPPRESSION
     Dosage: 10 MG, QD
     Route: 065
     Dates: start: 20190330
  5. TACROLIMUS MONOHYDRATE [Suspect]
     Active Substance: TACROLIMUS
     Dosage: 32 MG, UNK
     Route: 048
     Dates: start: 20190330
  6. MYCOPHENOLATE MOFETIL. [Suspect]
     Active Substance: MYCOPHENOLATE MOFETIL
     Dosage: 1000 MILLIGRAM
     Dates: start: 20190710
  7. MYCOPHENOLATE MOFETIL. [Suspect]
     Active Substance: MYCOPHENOLATE MOFETIL
     Indication: RENAL TRANSPLANT
     Dosage: 1000 MILLIGRAM
     Dates: start: 20190630, end: 20190704
  8. MYCOPHENOLATE MOFETIL. [Suspect]
     Active Substance: MYCOPHENOLATE MOFETIL
     Indication: IMMUNOSUPPRESSION
     Dosage: 1000 MILLIGRAM
     Route: 065
     Dates: start: 20190330, end: 20190704
  9. TACROLIMUS MONOHYDRATE [Suspect]
     Active Substance: TACROLIMUS
     Indication: RENAL TRANSPLANT
     Dosage: 12 MG, UNK
     Route: 048
     Dates: start: 20190330
  10. ANAKINRA [Concomitant]
     Active Substance: ANAKINRA
     Indication: GOUT
     Dosage: UNK
     Route: 065
     Dates: start: 2011
  11. MYCOPHENOLATE MOFETIL. [Suspect]
     Active Substance: MYCOPHENOLATE MOFETIL
     Indication: IMMUNOSUPPRESSION
     Dosage: 1 G, BID (X2/DAY)
     Route: 065
     Dates: start: 20190330
  12. MYCOPHENOLATE MOFETIL. [Suspect]
     Active Substance: MYCOPHENOLATE MOFETIL
     Indication: RENAL TRANSPLANT
     Dosage: 1000 MILLIGRAM
     Route: 065
     Dates: start: 20190710

REACTIONS (7)
  - Pulmonary tuberculosis [Recovering/Resolving]
  - Prostatitis [Recovered/Resolved]
  - Pyelonephritis [Recovered/Resolved]
  - Pancytopenia [Recovered/Resolved]
  - Renal impairment [Recovered/Resolved]
  - Pneumonia [Recovering/Resolving]
  - Disseminated tuberculosis [Recovering/Resolving]

NARRATIVE: CASE EVENT DATE: 20190621
